FAERS Safety Report 24801494 (Version 1)
Quarter: 2025Q1

REPORT INFORMATION
  Report Type: Spontaneous
  Country: US (occurrence: US)
  Receive Date: 20250102
  Receipt Date: 20250102
  Transmission Date: 20250409
  Serious: No
  Sender: PFIZER
  Company Number: US-PFIZER INC-PV202400169743

PATIENT
  Age: 48 Year
  Sex: Female

DRUGS (6)
  1. DUAVEE [Interacting]
     Active Substance: BAZEDOXIFENE ACETATE\ESTROGENS, CONJUGATED
     Route: 048
  2. BIJUVA [Interacting]
     Active Substance: ESTRADIOL\PROGESTERONE
  3. GABAPENTIN [Concomitant]
     Active Substance: GABAPENTIN
  4. ATORVASTATIN [Concomitant]
     Active Substance: ATORVASTATIN
  5. OXYCODONE [Concomitant]
     Active Substance: OXYCODONE
  6. MOUNJARO [Concomitant]
     Active Substance: TIRZEPATIDE

REACTIONS (3)
  - Off label use [Unknown]
  - Product use issue [Unknown]
  - Drug interaction [Unknown]
